FAERS Safety Report 22289516 (Version 5)
Quarter: 2024Q4

REPORT INFORMATION
  Report Type: Report from Study
  Country: US (occurrence: US)
  Receive Date: 20230505
  Receipt Date: 20241219
  Transmission Date: 20250115
  Serious: Yes (Hospitalization, Other)
  Sender: NOVARTIS
  Company Number: US-002147023-NVSC2023US099870

PATIENT
  Sex: Male

DRUGS (1)
  1. ENTRESTO [Suspect]
     Active Substance: SACUBITRIL\VALSARTAN
     Indication: Product used for unknown indication
     Dosage: UNK
     Route: 065

REACTIONS (10)
  - Heart rate decreased [Unknown]
  - Arrhythmia [Unknown]
  - Hypotension [Unknown]
  - Cardiac dysfunction [Unknown]
  - Hypertension [Unknown]
  - Cardiac disorder [Unknown]
  - Illness [Unknown]
  - Feeling abnormal [Unknown]
  - Device malfunction [Unknown]
  - Dizziness [Unknown]
